FAERS Safety Report 5414444-2 (Version None)
Quarter: 2007Q3

REPORT INFORMATION
  Report Type: 
  Country: None (occurrence: None)
  Receive Date: 20070713
  Receipt Date: 20061207
  Transmission Date: 20080115
  Serious: Yes (Other)
  Sender: FDA-Public Use
  Company Number: US-JNJFOC-20061001507

PATIENT
  Age: 22 Year
  Sex: Female
  Weight: 57.1532 kg

DRUGS (2)
  1. ORTHO EVRA [Suspect]
     Indication: CONTRACEPTION
     Dosage: 1 DOS(S), 3 IN 4 WEEK, TRANSDERMAL
     Route: 062
     Dates: start: 20050801, end: 20060318
  2. ACNE FACE CREAM (ALL OTHER THERAPEUTIC PRODUCTS) [Concomitant]

REACTIONS (1)
  - THROMBOTIC STROKE [None]
